FAERS Safety Report 6930582-7 (Version None)
Quarter: 2010Q3

REPORT INFORMATION
  Report Type: 
  Country: None (occurrence: None)
  Receive Date: 20100818
  Receipt Date: 20100811
  Transmission Date: 20110219
  Serious: Yes (Other)
  Sender: FDA-Public Use
  Company Number: US-PFIZER INC-2007098901

PATIENT
  Sex: Female
  Weight: 81 kg

DRUGS (5)
  1. CELEBREX [Suspect]
     Indication: ARTHRITIS
     Dosage: 100 MG, 1X/DAY
     Route: 048
     Dates: start: 20080101
  2. CELEBREX [Suspect]
     Dosage: 50 MG, 1X/DAY
     Route: 048
  3. CELEBREX [Suspect]
     Dosage: 150 MG, 1X/DAY
     Route: 048
  4. CELEBREX [Suspect]
     Dosage: 100 MG, 1X/DAY
     Route: 048
  5. ACETAMINOPHEN [Concomitant]
     Indication: ARTHRITIS
     Dosage: 1300 MG, EVERY 8 HOURS
     Route: 048
     Dates: start: 20040101

REACTIONS (4)
  - ARTHRALGIA [None]
  - DRUG INEFFECTIVE [None]
  - OSTEOARTHRITIS [None]
  - WRONG TECHNIQUE IN DRUG USAGE PROCESS [None]
